FAERS Safety Report 24758953 (Version 1)
Quarter: 2024Q4

REPORT INFORMATION
  Report Type: Spontaneous
  Country: GB (occurrence: GB)
  Receive Date: 20241220
  Receipt Date: 20241220
  Transmission Date: 20250114
  Serious: Yes (Other)
  Sender: SAMSUNG BIOEPIS
  Company Number: GB-SAMSUNG BIOEPIS-SB-2024-38116

PATIENT
  Age: 36 Year

DRUGS (1)
  1. EPYSQLI [Suspect]
     Active Substance: ECULIZUMAB-AAGH
     Indication: Product used for unknown indication

REACTIONS (2)
  - Delayed haemolytic transfusion reaction [Unknown]
  - Off label use [Unknown]
